FAERS Safety Report 21572252 (Version 1)
Quarter: 2022Q4

REPORT INFORMATION
  Report Type: Spontaneous
  Country: US (occurrence: US)
  Receive Date: 20221109
  Receipt Date: 20221109
  Transmission Date: 20230112
  Serious: No
  Sender: FDA-Public Use
  Company Number: US-TEVA-2022-US-2823012

PATIENT
  Age: 89 Year
  Sex: Female

DRUGS (1)
  1. SUCRALFATE [Interacting]
     Active Substance: SUCRALFATE
     Indication: Product used for unknown indication
     Route: 065

REACTIONS (3)
  - Insomnia [Unknown]
  - Drug interaction [Unknown]
  - Off label use [Unknown]
